FAERS Safety Report 13091451 (Version 1)
Quarter: 2017Q1

REPORT INFORMATION
  Report Type: Spontaneous
  Country: US (occurrence: US)
  Receive Date: 20170106
  Receipt Date: 20170106
  Transmission Date: 20170428
  Serious: No
  Sender: FDA-Public Use
  Company Number: US-DRREDDYS-USA/USA/16/0055824

PATIENT
  Age: 33 Year
  Sex: Female
  Weight: 83.01 kg

DRUGS (4)
  1. HABITROL [Suspect]
     Active Substance: NICOTINE
     Route: 062
     Dates: start: 20160102
  2. HABITROL [Suspect]
     Active Substance: NICOTINE
     Indication: SMOKING CESSATION THERAPY
     Route: 062
  3. ALBUTEROL. [Concomitant]
     Active Substance: ALBUTEROL
     Indication: PRODUCT USED FOR UNKNOWN INDICATION
     Route: 065
  4. IBUPROFEN. [Concomitant]
     Active Substance: IBUPROFEN
     Indication: PRODUCT USED FOR UNKNOWN INDICATION
     Route: 065

REACTIONS (4)
  - Overdose [Unknown]
  - Treatment noncompliance [Unknown]
  - Product quality issue [Unknown]
  - Stress [Recovered/Resolved]

NARRATIVE: CASE EVENT DATE: 20160110
